FAERS Safety Report 4278724-9 (Version None)
Quarter: 2004Q1

REPORT INFORMATION
  Report Type: 
  Country: None (occurrence: None)
  Receive Date: 20040102
  Receipt Date: 20031106
  Transmission Date: 20041129
  Serious: No
  Sender: FDA-Public Use
  Company Number: BLOC000341

PATIENT
  Age: 40 Year
  Sex: Female

DRUGS (4)
  1. MYOBLOC [Suspect]
     Indication: TORTICOLLIS
     Dosage: INTRAMUSCULAR
     Route: 030
     Dates: start: 20010808, end: 20010808
  2. ATIVAN [Concomitant]
  3. WELLBUTRIN [Concomitant]
  4. ESKALITH (LITHIUM) [Concomitant]

REACTIONS (10)
  - COUGH [None]
  - DRY MOUTH [None]
  - DYSGEUSIA [None]
  - DYSPHAGIA [None]
  - FATIGUE [None]
  - GLOSSODYNIA [None]
  - HOARSENESS [None]
  - HYPOAESTHESIA [None]
  - NECK PAIN [None]
  - ODYNOPHAGIA [None]
